FAERS Safety Report 9574606 (Version 2)
Quarter: 2013Q4

REPORT INFORMATION
  Report Type: Report from Study
  Country: JP (occurrence: JP)
  Receive Date: 20131001
  Receipt Date: 20131015
  Transmission Date: 20140711
  Serious: Yes (Hospitalization, Other)
  Sender: FDA-Public Use
  Company Number: JP-TAKEDA-2013TJP001214

PATIENT
  Age: 84 Year
  Sex: Male
  Weight: 61 kg

DRUGS (16)
  1. ALOGLIPTIN [Suspect]
     Indication: TYPE 2 DIABETES MELLITUS
     Dosage: 25 MG, QD
     Route: 048
     Dates: start: 20120508
  2. MICARDIS [Concomitant]
     Route: 048
  3. MICARDIS [Concomitant]
     Route: 048
  4. MICARDIS [Concomitant]
  5. MICARDIS [Concomitant]
     Route: 048
  6. TRICOR                             /00499301/ [Concomitant]
     Route: 048
  7. EPADEL-S [Concomitant]
     Route: 048
  8. BAYASPIRIN [Concomitant]
     Indication: MYOCARDIAL ISCHAEMIA
     Route: 048
  9. BAYASPIRIN [Concomitant]
     Route: 048
  10. ALLOPURINOL [Concomitant]
     Route: 048
  11. PARAMIDIN [Concomitant]
     Route: 048
  12. URALYT                             /01779901/ [Concomitant]
     Route: 048
  13. ALLEGRA [Concomitant]
     Route: 048
  14. JUZENTAIHOTO [Concomitant]
     Route: 048
  15. TRICOR                             /00499301/ [Concomitant]
     Route: 048
  16. URALYT                             /01779901/ [Concomitant]
     Route: 048

REACTIONS (1)
  - Gastric cancer [Recovered/Resolved with Sequelae]
